FAERS Safety Report 7739920-9 (Version None)
Quarter: 2011Q3

REPORT INFORMATION
  Report Type: 
  Country: None (occurrence: None)
  Receive Date: 20110903
  Receipt Date: 20110822
  Transmission Date: 20111222
  Serious: Yes (Other)
  Sender: FDA-Public Use
  Company Number: DSJ-2011-18457

PATIENT
  Age: 6 Decade
  Sex: Female

DRUGS (8)
  1. POTASSIUM CHLORIDE [Concomitant]
  2. EZETIMIBE/SIMVASTATIN [Concomitant]
  3. CIPROFIBRATE (CIPROFIBRATE) (CIPROFIBRATE) [Concomitant]
  4. FUROSEMIDE [Concomitant]
  5. BENICAR [Suspect]
     Indication: HYPERTENSION
     Dosage: 40 MG (40 MG,1 IN 1 D),PER ORAL ; 20 MG (20 MG,1 IN 1 D),PER ORAL
     Route: 048
     Dates: start: 20110701
  6. BENICAR [Suspect]
     Indication: HYPERTENSION
     Dosage: 40 MG (40 MG,1 IN 1 D),PER ORAL ; 20 MG (20 MG,1 IN 1 D),PER ORAL
     Route: 048
     Dates: start: 20090101, end: 20110701
  7. MINOXIDIL (MINOXIDIL) (MINOXIDIL) [Concomitant]
  8. SPIRONOLACTONE [Concomitant]

REACTIONS (1)
  - HYPOTENSION [None]
